FAERS Safety Report 7536507-8 (Version None)
Quarter: 2011Q2

REPORT INFORMATION
  Report Type: 
  Country: None (occurrence: None)
  Receive Date: 20110602
  Receipt Date: 20110530
  Transmission Date: 20111010
  Serious: Yes (Death)
  Sender: FDA-Public Use
  Company Number: 2010SP055537

PATIENT
  Age: 23 Year
  Sex: Male
  Weight: 63 kg

DRUGS (16)
  1. TEMODAL [Suspect]
     Indication: ANAPLASTIC ASTROCYTOMA
     Dosage: 75 MG/M2;QD;PO 150 MG/M2;QD;PO
     Route: 048
     Dates: start: 20090210, end: 20090323
  2. TEMODAL [Suspect]
     Indication: ANAPLASTIC ASTROCYTOMA
     Dosage: 75 MG/M2;QD;PO 150 MG/M2;QD;PO
     Route: 048
     Dates: start: 20090520, end: 20090524
  3. TEMODAL [Suspect]
     Indication: ANAPLASTIC ASTROCYTOMA
     Dosage: 75 MG/M2;QD;PO 150 MG/M2;QD;PO
     Route: 048
     Dates: start: 20090909, end: 20090913
  4. TEMODAL [Suspect]
     Indication: ANAPLASTIC ASTROCYTOMA
     Dosage: 75 MG/M2;QD;PO 150 MG/M2;QD;PO
     Route: 048
     Dates: start: 20090715, end: 20090719
  5. TEMODAL [Suspect]
     Indication: ANAPLASTIC ASTROCYTOMA
     Dosage: 75 MG/M2;QD;PO 150 MG/M2;QD;PO
     Route: 048
     Dates: start: 20090422, end: 20090426
  6. TEMODAL [Suspect]
     Indication: ANAPLASTIC ASTROCYTOMA
     Dosage: 75 MG/M2;QD;PO 150 MG/M2;QD;PO
     Route: 048
     Dates: start: 20090617, end: 20090621
  7. TEMODAL [Suspect]
     Indication: ANAPLASTIC ASTROCYTOMA
     Dosage: 75 MG/M2;QD;PO 150 MG/M2;QD;PO
     Route: 048
     Dates: start: 20090812, end: 20090816
  8. FAMOTIDINE [Concomitant]
  9. MAGNESIUM OXIDE [Concomitant]
  10. FUNGUARD [Concomitant]
  11. BAKTAR	(SULFAMETHOXAZOLE/ (SULFAMETHOXAZOLE/TRIMETHOPRIM) [Concomitant]
  12. BROACT [Concomitant]
  13. RINDERON (BETAMETHASONE) [Concomitant]
  14. CRAVIT (LEVOFLOXACIN HYDRATE) [Concomitant]
  15. BIOFERMIN R (LACTOMIN/AMYLOLYTIC BACILLUS) [Concomitant]
  16. VANCOMYCIN [Concomitant]

REACTIONS (6)
  - PNEUMONIA [None]
  - C-REACTIVE PROTEIN INCREASED [None]
  - STAPHYLOCOCCAL INFECTION [None]
  - DISEASE PROGRESSION [None]
  - LYMPHOCYTE COUNT DECREASED [None]
  - ANAPLASTIC ASTROCYTOMA [None]
